FAERS Safety Report 20186523 (Version 2)
Quarter: 2021Q4

REPORT INFORMATION
  Report Type: Report from Study
  Country: CO (occurrence: CO)
  Receive Date: 20211215
  Receipt Date: 20211224
  Transmission Date: 20220303
  Serious: Yes (Hospitalization, Other)
  Sender: FDA-Public Use
  Company Number: CO-AMGEN-COLSL2021128608

PATIENT
  Age: 51 Year
  Sex: Female

DRUGS (2)
  1. VECTIBIX [Suspect]
     Active Substance: PANITUMUMAB
     Indication: Colorectal cancer metastatic
     Dosage: 384 MILLIGRAM, Q2WK (BIWEEKLY)
     Route: 042
     Dates: start: 20210105, end: 20211123
  2. ARTIFICIAL TEARS (POLYVINYL ALCOHOL) [Concomitant]
     Active Substance: POLYVINYL ALCOHOL
     Indication: Skin reaction
     Dosage: UNK, ONE DROP IN EACH EYE, EVERY 12 HOURS OR REPEAT IF EYES FEEL DRY
     Dates: start: 20210915

REACTIONS (9)
  - Skin reaction [Recovering/Resolving]
  - Renal injury [Not Recovered/Not Resolved]
  - Blood creatinine increased [Recovering/Resolving]
  - Burning sensation [Not Recovered/Not Resolved]
  - Eye oedema [Not Recovered/Not Resolved]
  - Rash [Not Recovered/Not Resolved]
  - Dry mouth [Not Recovered/Not Resolved]
  - Mouth injury [Not Recovered/Not Resolved]
  - Skin laceration [Not Recovered/Not Resolved]

NARRATIVE: CASE EVENT DATE: 20210101
